FAERS Safety Report 16290413 (Version 1)
Quarter: 2019Q2

REPORT INFORMATION
  Report Type: Spontaneous
  Country: US (occurrence: US)
  Receive Date: 20190508
  Receipt Date: 20190508
  Transmission Date: 20190711
  Serious: Yes (Hospitalization)
  Sender: FDA-Public Use
  Company Number: None

PATIENT
  Age: 65 Year
  Sex: Male

DRUGS (1)
  1. HYDROCODONE% [Suspect]
     Active Substance: ACETAMINOPHEN\HYDROCODONE
     Route: 048

REACTIONS (7)
  - Tremor [None]
  - Treatment noncompliance [None]
  - Urinary incontinence [None]
  - Self-medication [None]
  - Withdrawal syndrome [None]
  - Muscle spasms [None]
  - Hypertension [None]

NARRATIVE: CASE EVENT DATE: 20190508
